FAERS Safety Report 14184308 (Version 1)
Quarter: 2017Q4

REPORT INFORMATION
  Report Type: Spontaneous
  Country: BE (occurrence: BE)
  Receive Date: 20171113
  Receipt Date: 20171113
  Transmission Date: 20180321
  Serious: Yes (Hospitalization, Other)
  Sender: FDA-Public Use
  Company Number: BE-BAYER-2017-216185

PATIENT
  Age: 22 Year
  Sex: Female

DRUGS (1)
  1. JAYDESS 13,5 MG [Suspect]
     Active Substance: LEVONORGESTREL
     Dosage: 14 MCG/24HR, CONT
     Route: 015
     Dates: start: 20160630

REACTIONS (4)
  - Ectopic pregnancy with contraceptive device [None]
  - Haematosalpinx [None]
  - Drug ineffective [None]
  - Salpingitis [None]
